FAERS Safety Report 7648704-1 (Version None)
Quarter: 2011Q3

REPORT INFORMATION
  Report Type: 
  Country: None (occurrence: None)
  Receive Date: 20110801
  Receipt Date: 20110722
  Transmission Date: 20111222
  Serious: Yes (Other)
  Sender: FDA-Public Use
  Company Number: PHHY2011SE67489

PATIENT
  Sex: Female

DRUGS (2)
  1. REQUIP [Concomitant]
     Dosage: UNK UKN, UNK
  2. STALEVO 100 [Suspect]
     Indication: PARKINSON'S DISEASE
     Dosage: 3 DF, DAILY
     Route: 048

REACTIONS (1)
  - MALIGNANT MELANOMA [None]
